FAERS Safety Report 7072428-5 (Version None)
Quarter: 2010Q4

REPORT INFORMATION
  Report Type: 
  Country: None (occurrence: None)
  Receive Date: 20101029
  Receipt Date: 20100325
  Transmission Date: 20110411
  Serious: No
  Sender: FDA-Public Use
  Company Number: A0841291A

PATIENT
  Age: 76 Year
  Sex: Female

DRUGS (12)
  1. ADVAIR DISKUS 100/50 [Suspect]
     Indication: CHRONIC OBSTRUCTIVE PULMONARY DISEASE
     Route: 055
  2. ADVAIR DISKUS 100/50 [Suspect]
     Route: 055
  3. OXYGEN [Concomitant]
  4. SYNTHROID [Concomitant]
  5. DIGOXIN [Concomitant]
  6. COUMADIN [Concomitant]
  7. DIOVAN [Concomitant]
  8. TORSEMIDE [Concomitant]
  9. JANUVIA [Concomitant]
  10. FISH OIL [Concomitant]
  11. CENTRUM VITAMIN [Concomitant]
  12. SINGULAIR [Concomitant]

REACTIONS (6)
  - DRUG ADMINISTRATION ERROR [None]
  - DYSPNOEA [None]
  - EXPIRED DRUG ADMINISTERED [None]
  - INHALATION THERAPY [None]
  - OVERDOSE [None]
  - PRODUCT QUALITY ISSUE [None]
